FAERS Safety Report 22380572 (Version 1)
Quarter: 2023Q2

REPORT INFORMATION
  Report Type: Spontaneous
  Country: CN (occurrence: CN)
  Receive Date: 20230529
  Receipt Date: 20230529
  Transmission Date: 20230721
  Serious: Yes (Other)
  Sender: FDA-Public Use
  Company Number: CN-009507513-2305CHN008131

PATIENT
  Age: 33 Year
  Sex: Female
  Weight: 55.1 kg

DRUGS (2)
  1. CILASTATIN SODIUM\IMIPENEM [Suspect]
     Active Substance: CILASTATIN SODIUM\IMIPENEM
     Indication: Delivery
     Dosage: 1 G(ALSO REPORTED AS 2 G), Q8H, IV DRIP
     Route: 041
     Dates: start: 20230507, end: 20230508
  2. SODIUM CHLORIDE [Concomitant]
     Active Substance: SODIUM CHLORIDE
     Indication: Delivery
     Dosage: 100 ML, Q8H, IV DRIP
     Route: 041
     Dates: start: 20230507, end: 20230508

REACTIONS (5)
  - Rash pruritic [Recovering/Resolving]
  - Angioedema [Recovering/Resolving]
  - Rash pustular [Recovering/Resolving]
  - Rash maculo-papular [Unknown]
  - Product use in unapproved indication [Unknown]

NARRATIVE: CASE EVENT DATE: 20230507
